FAERS Safety Report 24927957 (Version 1)
Quarter: 2025Q1

REPORT INFORMATION
  Report Type: Spontaneous
  Country: US (occurrence: None)
  Receive Date: 20250204
  Receipt Date: 20250204
  Transmission Date: 20250409
  Serious: Yes (Life-Threatening)
  Sender: FDA-CTU
  Company Number: None

PATIENT
  Sex: Female

DRUGS (3)
  1. ROCEPHIN [Suspect]
     Active Substance: CEFTRIAXONE SODIUM
     Indication: Urinary tract infection
     Dates: start: 20241207, end: 20241208
  2. CEFAZOLIN [Suspect]
     Active Substance: CEFAZOLIN
     Dates: start: 20241207, end: 20241207
  3. UNSPECIFIED INGREDIENT [Suspect]
     Active Substance: UNSPECIFIED INGREDIENT

REACTIONS (4)
  - Documented hypersensitivity to administered product [None]
  - Vomiting [None]
  - Dysuria [None]
  - Pollakiuria [None]

NARRATIVE: CASE EVENT DATE: 20241207
